FAERS Safety Report 16403528 (Version 1)
Quarter: 2019Q2

REPORT INFORMATION
  Report Type: Spontaneous
  Country: DE (occurrence: DE)
  Receive Date: 20190607
  Receipt Date: 20190607
  Transmission Date: 20190711
  Serious: Yes (Death, Life-Threatening, Hospitalization, Other)
  Sender: FDA-Public Use
  Company Number: DE-AUROBINDO-AUR-APL-2018-025820

PATIENT

DRUGS (17)
  1. LETROZOLE. [Suspect]
     Active Substance: LETROZOLE
     Dosage: 2.5 MILLIGRAM
     Route: 065
     Dates: end: 20170818
  2. PERTUZUMAB. [Suspect]
     Active Substance: PERTUZUMAB
     Indication: HER-2 POSITIVE BREAST CANCER
     Dosage: 420 MILLIGRAM
     Route: 042
     Dates: start: 20161108
  3. ATORVASTATIN [Concomitant]
     Active Substance: ATORVASTATIN
     Indication: HYPERCHOLESTEROLAEMIA
     Dosage: 20 MILLIGRAM, ONCE A DAY (1 PRO TAG / PER DAY)
     Route: 048
  4. ATORVASTATIN [Concomitant]
     Active Substance: ATORVASTATIN
     Dosage: UNK
     Route: 065
     Dates: end: 20170827
  5. LETROZOLE. [Suspect]
     Active Substance: LETROZOLE
     Indication: HER-2 POSITIVE BREAST CANCER
     Dosage: LAST DOSE PRIRO TO SAE ON 04/NOV/2016
     Route: 065
     Dates: start: 201405
  6. TRASTUZUMAB. [Suspect]
     Active Substance: TRASTUZUMAB
     Indication: HER-2 POSITIVE BREAST CANCER
     Dosage: 6 MILLIGRAM/KILOGRAM, 21 DAY
     Route: 042
     Dates: start: 20161108
  7. TRASTUZUMAB. [Suspect]
     Active Substance: TRASTUZUMAB
     Dosage: 6 MILLIGRAM/KILOGRAM, 21 DAYS
     Route: 042
     Dates: start: 20160108
  8. KEPPRA [Concomitant]
     Active Substance: LEVETIRACETAM
     Dosage: UNK
     Route: 065
     Dates: end: 20170827
  9. TRASTUZUMAB. [Suspect]
     Active Substance: TRASTUZUMAB
     Dosage: 6 MILLIGRAM/KILOGRAM, 21 DAYS
     Route: 042
     Dates: start: 20140108
  10. ZOMETA [Suspect]
     Active Substance: ZOLEDRONIC ACID
     Indication: PRODUCT USED FOR UNKNOWN INDICATION
     Dosage: 4 MILLIGRAM, 28 DAY
     Route: 016
     Dates: start: 20170302, end: 20170719
  11. PERTUZUMAB. [Suspect]
     Active Substance: PERTUZUMAB
     Indication: BREAST CANCER
  12. TRASTUZUMAB. [Suspect]
     Active Substance: TRASTUZUMAB
     Dosage: 6 MILLIGRAM/KILOGRAM
     Route: 042
     Dates: start: 20161108
  13. DOCETAXEL. [Suspect]
     Active Substance: DOCETAXEL
     Indication: HER-2 POSITIVE BREAST CANCER
     Dosage: 60-75 MG/M2
     Route: 042
     Dates: start: 20161108
  14. KEPPRA [Concomitant]
     Active Substance: LEVETIRACETAM
     Indication: EPILEPSY
     Dosage: LAST DOSE ON 06/JAN/2017
     Route: 048
     Dates: start: 2006
  15. ASPIRIN. [Concomitant]
     Active Substance: ASPIRIN
     Indication: CEREBROVASCULAR ACCIDENT
     Dosage: LAST DOSE ON 06/JAN/2017
     Route: 065
  16. CLOPIDOGREL [Concomitant]
     Active Substance: CLOPIDOGREL BISULFATE
     Indication: PRODUCT USED FOR UNKNOWN INDICATION
     Dosage: UNK
     Route: 065
     Dates: start: 20170621, end: 20170827
  17. PANTOPRAZOLE [Concomitant]
     Active Substance: PANTOPRAZOLE
     Indication: PRODUCT USED FOR UNKNOWN INDICATION
     Dosage: LAST DOSE ON 06/JAN/2017
     Route: 065
     Dates: start: 20170621, end: 20170827

REACTIONS (10)
  - Cough [Not Recovered/Not Resolved]
  - Vertigo [Recovered/Resolved]
  - Dysuria [Not Recovered/Not Resolved]
  - Epistaxis [Recovered/Resolved]
  - Neutropenia [Recovered/Resolved]
  - Dysgeusia [Recovered/Resolved]
  - Febrile neutropenia [Not Recovered/Not Resolved]
  - Diarrhoea [Not Recovered/Not Resolved]
  - Mucosal inflammation [Recovered/Resolved]
  - Death [Fatal]

NARRATIVE: CASE EVENT DATE: 20161115
